FAERS Safety Report 8936979 (Version 3)
Quarter: 2013Q4

REPORT INFORMATION
  Report Type: Report from Study
  Country: US (occurrence: US)
  Receive Date: 20121130
  Receipt Date: 20131220
  Transmission Date: 20140711
  Serious: Yes (Other)
  Sender: FDA-Public Use
  Company Number: US-US-EMD SERONO, INC.-7178438

PATIENT
  Age: 56 Year
  Sex: Female

DRUGS (4)
  1. REBIF [Suspect]
     Indication: MULTIPLE SCLEROSIS
     Route: 058
     Dates: start: 20120102
  2. VALIUM [Concomitant]
     Indication: MUSCLE SPASTICITY
  3. KLONOPIN [Concomitant]
     Indication: MUSCLE SPASTICITY
  4. PERCOCET                           /00446701/ [Concomitant]
     Indication: PAIN

REACTIONS (7)
  - Systemic lupus erythematosus [Recovering/Resolving]
  - Abdominal discomfort [Unknown]
  - Multiple sclerosis relapse [Recovering/Resolving]
  - Depression [Unknown]
  - Injection site erythema [Unknown]
  - Rash [Not Recovered/Not Resolved]
  - Influenza like illness [Recovered/Resolved]
